FAERS Safety Report 18579785 (Version 1)
Quarter: 2020Q4

REPORT INFORMATION
  Report Type: Spontaneous
  Country: UA (occurrence: UA)
  Receive Date: 20201204
  Receipt Date: 20201204
  Transmission Date: 20210114
  Serious: Yes (Other)
  Sender: FDA-Public Use
  Company Number: UA-PFIZER INC-2020478170

PATIENT
  Age: 62 Year
  Sex: Female
  Weight: 85 kg

DRUGS (3)
  1. INSULIN [Concomitant]
     Active Substance: INSULIN NOS
     Dosage: UNK
  2. IBRANCE [Suspect]
     Active Substance: PALBOCICLIB
     Dosage: 125 MG
  3. FULVESTRANT. [Concomitant]
     Active Substance: FULVESTRANT
     Dosage: UNK

REACTIONS (1)
  - Mental disorder [Unknown]
